FAERS Safety Report 25604643 (Version 1)
Quarter: 2025Q3

REPORT INFORMATION
  Report Type: Spontaneous
  Country: US (occurrence: US)
  Receive Date: 20250725
  Receipt Date: 20250725
  Transmission Date: 20251020
  Serious: No
  Sender: SUNOVION
  Company Number: US-SMPA-2025SPA009014AA

PATIENT

DRUGS (1)
  1. GEMTESA [Suspect]
     Active Substance: VIBEGRON
     Indication: Product used for unknown indication
     Dosage: ONE A DAY, TRIAL SAMPLE FOR 7 DAYS
     Route: 048
     Dates: start: 20250708

REACTIONS (3)
  - Initial insomnia [Unknown]
  - Gait disturbance [Unknown]
  - Myalgia [Unknown]
